FAERS Safety Report 4279391-0 (Version None)
Quarter: 2004Q1

REPORT INFORMATION
  Report Type: 
  Country: None (occurrence: None)
  Receive Date: 20040127
  Receipt Date: 20040122
  Transmission Date: 20041129
  Serious: Yes (Other)
  Sender: FDA-Public Use
  Company Number: WAES 0401GBR00188

PATIENT
  Sex: Male
  Weight: 104 kg

DRUGS (3)
  1. ASPIRIN [Concomitant]
     Indication: PROPHYLAXIS
     Route: 048
     Dates: end: 20031222
  2. LISINOPRIL [Concomitant]
     Indication: HYPERTENSION
     Route: 048
     Dates: start: 20031218, end: 20031222
  3. VIOXX [Suspect]
     Indication: PAIN
     Route: 048
     Dates: start: 20031218, end: 20031222

REACTIONS (3)
  - GASTROINTESTINAL HAEMORRHAGE [None]
  - GASTROINTESTINAL ULCER [None]
  - RENAL IMPAIRMENT [None]
